FAERS Safety Report 8615205-3 (Version None)
Quarter: 2012Q3

REPORT INFORMATION
  Report Type: 
  Country: None (occurrence: None)
  Receive Date: 20120823
  Receipt Date: 20120815
  Transmission Date: 20120928
  Serious: Yes (Other)
  Sender: FDA-Public Use
  Company Number: GB-ABBOTT-12P-167-0969331-00

PATIENT
  Age: 28 Year
  Sex: Female
  Weight: 73 kg

DRUGS (2)
  1. PREDNISOLONE [Concomitant]
     Indication: PRODUCT USED FOR UNKNOWN INDICATION
  2. HUMIRA [Suspect]
     Indication: CROHN'S DISEASE
     Route: 058
     Dates: start: 20120405, end: 20120530

REACTIONS (5)
  - WHEEZING [None]
  - RHINORRHOEA [None]
  - ASTHMA [None]
  - CONJUNCTIVITIS ALLERGIC [None]
  - EYE DISCHARGE [None]
